FAERS Safety Report 7932310-5 (Version None)
Quarter: 2011Q4

REPORT INFORMATION
  Report Type: 
  Country: None (occurrence: None)
  Receive Date: 20111121
  Receipt Date: 20111109
  Transmission Date: 20120403
  Serious: Yes (Other)
  Sender: FDA-Public Use
  Company Number: US-RB-027381-11

PATIENT
  Sex: Female

DRUGS (5)
  1. NEURONTIN [Concomitant]
     Indication: NEUROPATHY PERIPHERAL
     Route: 048
  2. SUBOXONE [Suspect]
     Indication: PRODUCT USED FOR UNKNOWN INDICATION
     Dosage: DOSING INFORMATION UNKNOWN
     Route: 065
  3. PRE-NATAL VITS [Concomitant]
     Dosage: 1/D
     Route: 065
     Dates: start: 20110101
  4. PROGESTIN INJ [Concomitant]
     Indication: CERVIX DISORDER
     Dosage: UNKNOWN
     Route: 030
  5. XANAX [Concomitant]
     Indication: ANXIETY
     Route: 048
     Dates: start: 20040101

REACTIONS (3)
  - SHORTENED CERVIX [None]
  - CEPHALO-PELVIC DISPROPORTION [None]
  - MATERNAL EXPOSURE DURING PREGNANCY [None]
